FAERS Safety Report 4347075-6 (Version None)
Quarter: 2004Q2

REPORT INFORMATION
  Report Type: 
  Country: None (occurrence: None)
  Receive Date: 20040426
  Receipt Date: 20040316
  Transmission Date: 20050107
  Serious: Yes (Other)
  Sender: FDA-Public Use
  Company Number: JP-GLAXOSMITHKLINE-B0327358A

PATIENT
  Age: 79 Year
  Sex: Male

DRUGS (9)
  1. FLUTICASONE PROPIONATE [Suspect]
     Dosage: 800MCG TWICE PER DAY
     Route: 055
     Dates: start: 20040204, end: 20040225
  2. TEMOCAPRIL HYDROCHLORIDE [Concomitant]
     Indication: HYPERTENSION
     Dosage: 1MG PER DAY
     Route: 048
     Dates: start: 19940226
  3. DILAZEP HYDROCHLORIDE [Concomitant]
     Indication: HYPERTENSION
     Dosage: 150MG PER DAY
     Route: 048
     Dates: start: 19940226
  4. PROTOPORPHYRIN DISODIUM [Concomitant]
     Dosage: 60MG PER DAY
     Route: 048
     Dates: start: 19940226
  5. NILVADIPINE [Concomitant]
     Indication: HYPERTENSION
     Dosage: 2MG PER DAY
     Route: 048
     Dates: start: 19940226
  6. THEOPHYLLINE [Concomitant]
     Dosage: 200MG PER DAY
     Route: 048
     Dates: start: 20031007
  7. MONTELUKAST SODIUM [Concomitant]
     Dosage: 10MG PER DAY
     Route: 048
     Dates: start: 20031007
  8. ZOPICLONE [Concomitant]
     Indication: INSOMNIA
     Dosage: 3.75MG PER DAY
     Route: 048
     Dates: start: 19930226
  9. NITRAZEPAM [Concomitant]
     Dosage: 5MG PER DAY
     Route: 048
     Dates: start: 19931226

REACTIONS (5)
  - ANAEMIA [None]
  - CHEST DISCOMFORT [None]
  - MELAENA [None]
  - OESOPHAGEAL CANDIDIASIS [None]
  - REFLUX OESOPHAGITIS [None]
